FAERS Safety Report 9767423 (Version 1)
Quarter: 2013Q4

REPORT INFORMATION
  Report Type: Spontaneous
  Country: CN (occurrence: None)
  Receive Date: 20131003
  Receipt Date: 20131003
  Transmission Date: 20140711
  Serious: Yes (Death)
  Sender: FDA-Public Use
  Company Number: FK201304442

PATIENT
  Age: 64 Year
  Sex: Male

DRUGS (3)
  1. CEFUROXIME [Suspect]
     Indication: TRACHEITIS
  2. ALCOHOL [Suspect]
     Indication: PRODUCT USED FOR UNKNOWN INDICATION
     Route: 048
  3. ALCOHOL [Suspect]
     Indication: EMPHYSEMA
     Route: 048

REACTIONS (10)
  - Flushing [None]
  - Hyperhidrosis [None]
  - Asthenia [None]
  - Heart rate increased [None]
  - Dyspnoea [None]
  - Loss of consciousness [None]
  - Coronary artery stenosis [None]
  - Arteriosclerosis coronary artery [None]
  - Blood methanol increased [None]
  - Alcohol interaction [None]
